FAERS Safety Report 4843748-7 (Version None)
Quarter: 2005Q4

REPORT INFORMATION
  Report Type: 
  Country: None (occurrence: None)
  Receive Date: 20051202
  Receipt Date: 20051123
  Transmission Date: 20060501
  Serious: Yes (Hospitalization, Other)
  Sender: FDA-Public Use
  Company Number: 2005CG01955

PATIENT
  Age: 42 Year
  Sex: Male

DRUGS (7)
  1. FOSCAVIR [Suspect]
     Route: 042
     Dates: start: 20051109
  2. AZADOSE [Concomitant]
  3. BACTRIM [Concomitant]
     Indication: ANTIBIOTIC PROPHYLAXIS
  4. BACTRIM [Concomitant]
     Indication: ANTIBIOTIC PROPHYLAXIS
  5. TRIZIVIR [Concomitant]
     Indication: HIV INFECTION
     Dates: start: 20051001
  6. NORVIR [Concomitant]
     Indication: HIV INFECTION
     Dates: start: 20051001
  7. TELZIR [Concomitant]

REACTIONS (2)
  - HEMIANOPIA HOMONYMOUS [None]
  - VITREOUS FLOATERS [None]
